FAERS Safety Report 8823596 (Version 1)
Quarter: 2012Q4

REPORT INFORMATION
  Report Type: 
  Country: US (occurrence: US)
  Receive Date: 20121003
  Receipt Date: 20121003
  Transmission Date: 20130627
  Serious: Yes (Hospitalization)
  Sender: FDA-Public Use
  Company Number: CHPA2012US020439

PATIENT
  Age: 63 Year
  Sex: Female

DRUGS (1)
  1. XYLOMETAZOLINE HYDROCHLORIDE [Suspect]
     Indication: NASOPHARYNGITIS
     Dosage: UNK, PRN
     Route: 045
     Dates: end: 1994

REACTIONS (4)
  - Ankle fracture [Recovered/Resolved]
  - Dyspnoea [Recovered/Resolved]
  - Feeling abnormal [Recovered/Resolved]
  - Overdose [Unknown]
